FAERS Safety Report 6552304-4 (Version None)
Quarter: 2010Q1

REPORT INFORMATION
  Report Type: 
  Country: None (occurrence: None)
  Receive Date: 20100126
  Receipt Date: 20100120
  Transmission Date: 20100710
  Serious: Yes (Other)
  Sender: FDA-Public Use
  Company Number: AT-AMGEN-QUU386728

PATIENT
  Sex: Female

DRUGS (11)
  1. MIMPARA [Suspect]
     Indication: HYPERPARATHYROIDISM SECONDARY
  2. EPIVIR [Concomitant]
  3. KALETRA [Concomitant]
  4. AMLODIPINE [Concomitant]
  5. DILATREND [Concomitant]
  6. BLOPRESS [Concomitant]
  7. DREISAVIT [Concomitant]
  8. ZIAGEN [Concomitant]
  9. CETRIZIN [Concomitant]
  10. CALCIUM CARBONATE [Concomitant]
  11. ALUMINUM HYDROXIDE GEL [Concomitant]

REACTIONS (1)
  - BLOOD CREATINE PHOSPHOKINASE INCREASED [None]
